FAERS Safety Report 9274521 (Version 3)
Quarter: 2015Q1

REPORT INFORMATION
  Report Type: Spontaneous
  Country: US (occurrence: US)
  Receive Date: 20130507
  Receipt Date: 20150129
  Transmission Date: 20150721
  Serious: Yes (Hospitalization, Other)
  Sender: FDA-Public Use
  Company Number: US-ROCHE-792028

PATIENT
  Age: 17 Year
  Sex: Male
  Weight: 65.38 kg

DRUGS (5)
  1. ACCUTANE [Suspect]
     Active Substance: ISOTRETINOIN
     Route: 065
  2. SOTRET [Suspect]
     Active Substance: ISOTRETINOIN
     Route: 065
     Dates: start: 20071126, end: 20071210
  3. SOTRET [Suspect]
     Active Substance: ISOTRETINOIN
     Indication: ACNE
     Route: 065
     Dates: start: 2006, end: 2007
  4. ACCUTANE [Suspect]
     Active Substance: ISOTRETINOIN
     Indication: ACNE
     Route: 065
     Dates: start: 199811, end: 199904
  5. SOTRET [Suspect]
     Active Substance: ISOTRETINOIN
     Route: 065
     Dates: start: 20071210, end: 200807

REACTIONS (12)
  - Small intestinal obstruction [Unknown]
  - Irritable bowel syndrome [Unknown]
  - Crohn^s disease [Unknown]
  - Emotional distress [Unknown]
  - Dry skin [Unknown]
  - Pruritus [Unknown]
  - Blood triglycerides increased [Unknown]
  - Inflammatory bowel disease [Unknown]
  - Depression [Unknown]
  - Chapped lips [Unknown]
  - Blood cholesterol increased [Unknown]
  - Acne [Unknown]

NARRATIVE: CASE EVENT DATE: 19981203
